FAERS Safety Report 5966999-7 (Version None)
Quarter: 2008Q4

REPORT INFORMATION
  Report Type: 
  Country: None (occurrence: None)
  Receive Date: 20081125
  Receipt Date: 20081111
  Transmission Date: 20090506
  Serious: Yes (Hospitalization, Other)
  Sender: FDA-Public Use
  Company Number: US-ELI_LILLY_AND_COMPANY-US200811002559

PATIENT
  Sex: Female

DRUGS (4)
  1. FORTEO [Suspect]
     Dosage: UNK, UNK
  2. PLAVIX [Concomitant]
  3. ASPIRIN [Concomitant]
  4. LIPITOR [Concomitant]

REACTIONS (4)
  - ARTHRALGIA [None]
  - CORONARY ARTERY OCCLUSION [None]
  - INJECTION SITE PAIN [None]
  - MYOCARDIAL ISCHAEMIA [None]
